FAERS Safety Report 12519348 (Version 1)
Quarter: 2016Q2

REPORT INFORMATION
  Report Type: Spontaneous
  Country: DE (occurrence: DE)
  Receive Date: 20160630
  Receipt Date: 20160630
  Transmission Date: 20160815
  Serious: Yes (Hospitalization)
  Sender: FDA-Public Use
  Company Number: DE-TEVA-671487GER

PATIENT
  Age: 33 Year
  Sex: Male
  Weight: 153 kg

DRUGS (1)
  1. ERYTHROMYCIN-RATIOPHARM 500MG FILMTABLETTEN [Suspect]
     Active Substance: ERYTHROMYCIN
     Indication: ERYSIPELAS
     Dosage: 3 DOSAGE FORMS DAILY;
     Route: 048

REACTIONS (1)
  - Drug eruption [Recovered/Resolved]

NARRATIVE: CASE EVENT DATE: 20160422
